FAERS Safety Report 5836394-X (Version None)
Quarter: 2008Q3

REPORT INFORMATION
  Report Type: 
  Country: None (occurrence: None)
  Receive Date: 20080806
  Receipt Date: 20080806
  Transmission Date: 20090109
  Serious: Yes (Other)
  Sender: FDA-Public Use
  Company Number: None

PATIENT
  Age: 30 Year
  Sex: Female
  Weight: 145.151 kg

DRUGS (1)
  1. GABAPENTIN [Suspect]
     Indication: DIABETIC NEUROPATHY
     Dosage: 300 MG 1 PER DAY PO
     Route: 048
     Dates: start: 20080601, end: 20080727

REACTIONS (3)
  - ANXIETY [None]
  - DEPRESSION [None]
  - FEAR [None]
